FAERS Safety Report 6429898-2 (Version None)
Quarter: 2009Q4

REPORT INFORMATION
  Report Type: 
  Country: None (occurrence: None)
  Receive Date: 20091103
  Receipt Date: 20091019
  Transmission Date: 20100525
  Serious: Yes (Hospitalization, Other)
  Sender: FDA-Public Use
  Company Number: AUR-APL-2009-00968

PATIENT
  Age: 21 Year
  Sex: Male

DRUGS (2)
  1. FLUOXETINE [Suspect]
     Indication: DEPRESSION
     Dosage: 10MG, DAILY, UNK
  2. ACITRETIN [Suspect]
     Indication: PSORIASIS
     Dosage: 35MG, DAILY, UNK

REACTIONS (5)
  - CONDITION AGGRAVATED [None]
  - DEPRESSION [None]
  - DERMATITIS EXFOLIATIVE [None]
  - DRUG INTERACTION [None]
  - PUSTULAR PSORIASIS [None]
